FAERS Safety Report 7774919-8 (Version None)
Quarter: 2011Q3

REPORT INFORMATION
  Report Type: 
  Country: None (occurrence: None)
  Receive Date: 20110921
  Receipt Date: 20110908
  Transmission Date: 20111222
  Serious: Yes (Hospitalization, Other)
  Sender: FDA-Public Use
  Company Number: CIP11000512

PATIENT
  Age: 76 Year
  Sex: Female
  Weight: 59.4 kg

DRUGS (15)
  1. AFEDITAB (NIFEDIPINE) [Concomitant]
  2. LEVAQUIN [Concomitant]
  3. KLOR-CON [Concomitant]
  4. METHYLPREDNISOLONE [Concomitant]
  5. ACTONEL [Suspect]
     Indication: OSTEOPENIA
     Dosage: 35 MG UNKNOWN, ORAL
     Route: 048
     Dates: start: 20050912, end: 20070101
  6. AMBIEN [Concomitant]
  7. LIPITOR [Concomitant]
  8. PLAVIX [Concomitant]
  9. TRIAMCINOLONE [Concomitant]
  10. FOSAMAX [Suspect]
     Indication: OSTEOPENIA
     Dosage: 70 MG ONCE WEEKLY, ORAL
     Route: 048
     Dates: start: 20070101, end: 20100318
  11. ZOCOR [Concomitant]
  12. MEVACOR [Concomitant]
  13. CLARINEX [Concomitant]
  14. ALLEGRA D (FEXOFENADINE HYDROCHLORIDE, PSEUDOEPHEDRINE HYDROCHLORIDE) [Concomitant]
  15. VALSARTAN/HYDROCHLOORTHIAZIDE (HYDROCHLORTHIAZIDE, VALSARTAN) [Concomitant]

REACTIONS (27)
  - GAIT DISTURBANCE [None]
  - URINARY TRACT INFECTION [None]
  - NAUSEA [None]
  - VOMITING [None]
  - VENOUS INSUFFICIENCY [None]
  - DYSPEPSIA [None]
  - PAIN [None]
  - GLYCOSYLATED HAEMOGLOBIN INCREASED [None]
  - TYPE 2 DIABETES MELLITUS [None]
  - INCISION SITE HAEMORRHAGE [None]
  - OSTEOPOROSIS [None]
  - POST PROCEDURAL HAEMORRHAGE [None]
  - INCISIONAL DRAINAGE [None]
  - CONDITION AGGRAVATED [None]
  - FALL [None]
  - ANAEMIA POSTOPERATIVE [None]
  - HYPOPHAGIA [None]
  - FEMUR FRACTURE [None]
  - PAIN IN EXTREMITY [None]
  - DEPRESSION [None]
  - FATIGUE [None]
  - VITAMIN D DECREASED [None]
  - LIMB DEFORMITY [None]
  - OEDEMA PERIPHERAL [None]
  - INCISION SITE HAEMATOMA [None]
  - LIMB ASYMMETRY [None]
  - ANXIETY [None]
